FAERS Safety Report 18059426 (Version 1)
Quarter: 2020Q3

REPORT INFORMATION
  Report Type: Spontaneous
  Country: US (occurrence: US)
  Receive Date: 20200723
  Receipt Date: 20200723
  Transmission Date: 20201103
  Serious: No
  Sender: FDA-Public Use
  Company Number: None

PATIENT
  Age: 57 Year
  Sex: Male

DRUGS (1)
  1. TOBRAMYCIN NEB 300MG/5ML [Suspect]
     Active Substance: TOBRAMYCIN
     Route: 055
     Dates: start: 2020

REACTIONS (7)
  - Dyspnoea [None]
  - Product supply issue [None]
  - Drug ineffective [None]
  - Emergency care [None]
  - Anxiety [None]
  - Peripheral swelling [None]
  - Chest pain [None]

NARRATIVE: CASE EVENT DATE: 20200703
